FAERS Safety Report 5605661-7 (Version None)
Quarter: 2008Q1

REPORT INFORMATION
  Report Type: 
  Country: None (occurrence: None)
  Receive Date: 20080123
  Receipt Date: 20080123
  Transmission Date: 20080703
  Serious: Yes (Death)
  Sender: FDA-Public Use
  Company Number: None

PATIENT
  Sex: Male
  Weight: 65 kg

DRUGS (3)
  1. LOVENOX [Suspect]
     Indication: DEEP VEIN THROMBOSIS
     Dosage: 80MG  TWICE DAILY  SQ  (1-2 DOSES)
     Route: 058
     Dates: start: 20071114, end: 20071114
  2. LOVENOX [Suspect]
     Indication: THROMBOSIS PROPHYLAXIS
     Dosage: 80MG  TWICE DAILY  SQ  (1-2 DOSES)
     Route: 058
     Dates: start: 20071114, end: 20071114
  3. WARFARIN SODIUM [Concomitant]

REACTIONS (5)
  - BRADYCARDIA [None]
  - CARDIO-RESPIRATORY ARREST [None]
  - CONVULSION [None]
  - HYPOTENSION [None]
  - MENTAL STATUS CHANGES [None]
